FAERS Safety Report 4634005-2 (Version None)
Quarter: 2005Q2

REPORT INFORMATION
  Report Type: 
  Country: None (occurrence: None)
  Receive Date: 20050407
  Receipt Date: 20050322
  Transmission Date: 20051028
  Serious: Yes (Death, Hospitalization)
  Sender: FDA-Public Use
  Company Number: US124345

PATIENT
  Age: 72 Year
  Sex: Male

DRUGS (2)
  1. ETANERCEPT [Suspect]
     Indication: RHEUMATOID ARTHRITIS
  2. LEFLUNOMIDE [Concomitant]

REACTIONS (8)
  - BRONCHIAL CARCINOMA [None]
  - HYPOTENSION [None]
  - LUNG ABSCESS [None]
  - MYCOBACTERIAL INFECTION [None]
  - MYCOBACTERIUM AVIUM COMPLEX INFECTION [None]
  - PULMONARY TUBERCULOSIS [None]
  - RESPIRATORY FAILURE [None]
  - SEPTIC SHOCK [None]
